FAERS Safety Report 5488993-5 (Version None)
Quarter: 2007Q4

REPORT INFORMATION
  Report Type: 
  Country: None (occurrence: None)
  Receive Date: 20071016
  Receipt Date: 20071003
  Transmission Date: 20080405
  Serious: Yes (Other)
  Sender: FDA-Public Use
  Company Number: 162364ISR

PATIENT
  Age: 58 Year
  Sex: Female

DRUGS (10)
  1. OFLOXACIN [Suspect]
     Indication: POSTOPERATIVE CARE
     Dates: start: 20070614
  2. CYCLOPENTOLATE HCL [Suspect]
     Indication: PREOPERATIVE CARE
     Dates: start: 20070614
  3. DEXAMETHASONE 0.5MG TAB [Concomitant]
  4. GLYCEROL 2.6% [Concomitant]
  5. HYALURONATE SODIUM [Concomitant]
  6. LIDOCAINE HYDROCHLORIDE [Concomitant]
  7. FLURBIPROFEN SODIUM [Concomitant]
  8. PHENYLEPHRINE [Concomitant]
  9. POVIDONE IODINE [Concomitant]
  10. PROXYMETACAINE [Concomitant]

REACTIONS (1)
  - TOXIC ANTERIOR SEGMENT SYNDROME [None]
